FAERS Safety Report 23622199 (Version 1)
Quarter: 2024Q1

REPORT INFORMATION
  Report Type: Spontaneous
  Country: US (occurrence: US)
  Receive Date: 20240312
  Receipt Date: 20240312
  Transmission Date: 20240410
  Serious: No
  Sender: FDA-Public Use
  Company Number: US-002147023-NVSC2024US052284

PATIENT
  Sex: Male

DRUGS (1)
  1. MEKINIST [Suspect]
     Active Substance: TRAMETINIB DIMETHYL SULFOXIDE
     Indication: Chronic lymphocytic leukaemia
     Dosage: 1 MG, QD (FOR 60 DAYS)
     Route: 048
     Dates: start: 201703

REACTIONS (2)
  - Skin lesion [Unknown]
  - Gastrointestinal disorder [Unknown]
